FAERS Safety Report 14236297 (Version 1)
Quarter: 2017Q4

REPORT INFORMATION
  Report Type: Spontaneous
  Country: CH (occurrence: CH)
  Receive Date: 20171129
  Receipt Date: 20171129
  Transmission Date: 20180321
  Serious: Yes (Life-Threatening, Hospitalization)
  Sender: FDA-Public Use
  Company Number: PHHY2017CH171977

PATIENT
  Age: 29 Day
  Sex: Male
  Weight: 4.44 kg

DRUGS (1)
  1. RIMACTAN [Suspect]
     Active Substance: RIFAMPIN
     Indication: FOETAL EXPOSURE DURING PREGNANCY
     Dosage: FETAL EXPOSURE VIA FATHER: 600 MG, QD
     Route: 064

REACTIONS (1)
  - Neonatal cholestasis [Unknown]

NARRATIVE: CASE EVENT DATE: 20171110
